FAERS Safety Report 7435199-6 (Version None)
Quarter: 2011Q2

REPORT INFORMATION
  Report Type: 
  Country: None (occurrence: None)
  Receive Date: 20110418
  Receipt Date: 20110405
  Transmission Date: 20111010
  Serious: Yes (Hospitalization)
  Sender: FDA-Public Use
  Company Number: 2010SP041897

PATIENT
  Age: 37 Year
  Sex: Female

DRUGS (11)
  1. DESLORATADINE [Suspect]
     Indication: PRODUCT USED FOR UNKNOWN INDICATION
     Dosage: PO
     Route: 048
     Dates: start: 20100704, end: 20100706
  2. DAFALGAN [Concomitant]
  3. AUGMENTIN '125' [Suspect]
     Indication: PYREXIA
     Dosage: 3 GM;QD;PO
     Route: 048
     Dates: start: 20100703, end: 20100704
  4. AUGMENTIN '125' [Suspect]
     Indication: COUGH
     Dosage: 3 GM;QD;PO
     Route: 048
     Dates: start: 20100703, end: 20100704
  5. PARKINANE [Concomitant]
  6. XENAZINE [Concomitant]
  7. ROVAMYCINE (SPIRAMYCIN) [Suspect]
     Indication: COUGH
     Dosage: PO
     Route: 048
     Dates: start: 20100704, end: 20100707
  8. ROVAMYCINE (SPIRAMYCIN) [Suspect]
     Indication: PYREXIA
     Dosage: PO
     Route: 048
     Dates: start: 20100704, end: 20100707
  9. DEPAKENE [Suspect]
     Indication: GRAND MAL CONVULSION
     Dates: start: 20100702, end: 20100704
  10. TRAMADOL HCL [Suspect]
     Indication: PRODUCT USED FOR UNKNOWN INDICATION
     Dosage: PO
     Route: 048
     Dates: start: 20100704, end: 20100706
  11. DIVARIUS [Concomitant]

REACTIONS (4)
  - GRAND MAL CONVULSION [None]
  - COUGH [None]
  - PYREXIA [None]
  - RASH MORBILLIFORM [None]
